FAERS Safety Report 15641675 (Version 1)
Quarter: 2018Q4

REPORT INFORMATION
  Report Type: Spontaneous
  Country: US (occurrence: US)
  Receive Date: 20181121
  Receipt Date: 20181121
  Transmission Date: 20190205
  Serious: No
  Sender: FDA-Public Use
  Company Number: US-ACCORD-071008

PATIENT
  Age: 69 Year
  Sex: Female

DRUGS (1)
  1. HYDROCHLOROTHIAZIDE. [Suspect]
     Active Substance: HYDROCHLOROTHIAZIDE
     Indication: HYPERTENSION
     Route: 048

REACTIONS (5)
  - Hypotension [Unknown]
  - Asthenia [Unknown]
  - Vomiting [Unknown]
  - Dizziness [Unknown]
  - Nausea [Unknown]
